FAERS Safety Report 5624414-7 (Version None)
Quarter: 2008Q1

REPORT INFORMATION
  Report Type: 
  Country: None (occurrence: None)
  Receive Date: 20080213
  Receipt Date: 20080211
  Transmission Date: 20080703
  Serious: Yes (Other)
  Sender: FDA-Public Use
  Company Number: GB-BRISTOL-MYERS SQUIBB COMPANY-14072730

PATIENT

DRUGS (4)
  1. ANGETTES [Suspect]
     Indication: ANTIPLATELET THERAPY
  2. WARFARIN SODIUM [Suspect]
     Indication: ANTIPLATELET THERAPY
  3. DIPYRIDAMOLE [Suspect]
     Indication: ANTIPLATELET THERAPY
  4. CLOPIDOGREL BISULFATE [Suspect]
     Indication: ANTIPLATELET THERAPY

REACTIONS (2)
  - CEREBROVASCULAR ACCIDENT [None]
  - PULMONARY EMBOLISM [None]
